FAERS Safety Report 16332899 (Version 3)
Quarter: 2019Q3

REPORT INFORMATION
  Report Type: Spontaneous
  Country: US (occurrence: US)
  Receive Date: 20190520
  Receipt Date: 20190725
  Transmission Date: 20191004
  Serious: Yes (Other)
  Sender: FDA-Public Use
  Company Number: US-PFIZER INC-2019214502

PATIENT
  Age: 72 Year
  Sex: Female

DRUGS (1)
  1. IBRANCE [Suspect]
     Active Substance: PALBOCICLIB
     Indication: BREAST CANCER STAGE IV
     Dosage: 125 MG, UNK

REACTIONS (7)
  - Chronic obstructive pulmonary disease [Unknown]
  - Nausea [Unknown]
  - Vomiting [Unknown]
  - Osteopenia [Unknown]
  - Neoplasm progression [Unknown]
  - Gout [Unknown]
  - Neutropenia [Unknown]
